FAERS Safety Report 7083416-7 (Version None)
Quarter: 2010Q4

REPORT INFORMATION
  Report Type: 
  Country: None (occurrence: None)
  Receive Date: 20101104
  Receipt Date: 20101029
  Transmission Date: 20110411
  Serious: Yes (Disabling, Other)
  Sender: FDA-Public Use
  Company Number: A0889716A

PATIENT
  Sex: Male

DRUGS (1)
  1. ADVAIR DISKUS 100/50 [Suspect]
     Dosage: 1PUFF TWICE PER DAY
     Route: 055

REACTIONS (3)
  - DRUG INEFFECTIVE [None]
  - OXYGEN SATURATION DECREASED [None]
  - PRODUCT QUALITY ISSUE [None]
